FAERS Safety Report 5729432-6 (Version None)
Quarter: 2008Q2

REPORT INFORMATION
  Report Type: 
  Country: None (occurrence: None)
  Receive Date: 20080501
  Receipt Date: 20080414
  Transmission Date: 20081010
  Serious: Yes (Hospitalization)
  Sender: FDA-Public Use
  Company Number: 1-16014930

PATIENT
  Age: 88 Year
  Sex: Female
  Weight: 72.5755 kg

DRUGS (9)
  1. FENTANYL [Suspect]
     Indication: GROIN PAIN
     Dosage: 25MCG/HR EVERY 72 HRS, TRANSDERMAL
     Route: 062
     Dates: start: 20080312, end: 20080315
  2. IBUPROFEN TABLETS [Concomitant]
  3. LEVOTHYROXINE SODIUM [Concomitant]
  4. ZANTAC [Concomitant]
  5. ZOLOFT [Concomitant]
  6. CALCIUM [Concomitant]
  7. FISH OIL [Concomitant]
  8. MULTI-VITAMIN [Concomitant]
  9. ASCORBIC ACID [Concomitant]

REACTIONS (2)
  - MUSCLE HAEMORRHAGE [None]
  - NAUSEA [None]
